FAERS Safety Report 18391634 (Version 1)
Quarter: 2020Q4

REPORT INFORMATION
  Report Type: Spontaneous
  Country: US (occurrence: US)
  Receive Date: 20201015
  Receipt Date: 20201015
  Transmission Date: 20210114
  Serious: No
  Sender: FDA-Public Use
  Company Number: None

PATIENT
  Age: 43 Year
  Sex: Female
  Weight: 48.6 kg

DRUGS (1)
  1. EMGALITY [Suspect]
     Active Substance: GALCANEZUMAB-GNLM
     Indication: MIGRAINE
     Dosage: QUANTITY:2 INJECTION(S);OTHER FREQUENCY:MONTHLY;?
     Route: 030

REACTIONS (9)
  - Injection site swelling [None]
  - Anxiety [None]
  - Alopecia [None]
  - Arthralgia [None]
  - Temporomandibular joint syndrome [None]
  - Injection site pain [None]
  - Asthenia [None]
  - Injection site bruising [None]
  - Insomnia [None]

NARRATIVE: CASE EVENT DATE: 20200318
